FAERS Safety Report 7728887-5 (Version None)
Quarter: 2011Q3

REPORT INFORMATION
  Report Type: 
  Country: None (occurrence: None)
  Receive Date: 20110906
  Receipt Date: 20110825
  Transmission Date: 20111222
  Serious: Yes (Disabling, Other)
  Sender: FDA-Public Use
  Company Number: PHHY2011GB75930

PATIENT
  Age: 34 Year
  Sex: Female
  Weight: 46 kg

DRUGS (7)
  1. CALCIUM CARBONATE [Interacting]
     Indication: OSTEOPENIA
     Dosage: 1 DF, QID
     Dates: start: 19980101
  2. PROVIGIL [Interacting]
     Dosage: 200 MG, QD
     Route: 065
     Dates: start: 20061001, end: 20080204
  3. MULTI-VITAMINS [Concomitant]
  4. AMITRIPTYLINE HCL [Suspect]
     Indication: DEPRESSION
     Dosage: 150 MG, QD
     Dates: start: 20060701
  5. PROVIGIL [Interacting]
     Indication: FATIGUE
     Dosage: 200 MG, QD
     Route: 065
     Dates: start: 20060201, end: 20060301
  6. NORDETTE-28 [Interacting]
     Indication: CONTRACEPTION
     Dosage: 30 MG, QD
     Dates: start: 20040101
  7. NIFEDIPINE [Interacting]
     Indication: RAYNAUD'S PHENOMENON
     Dosage: 5 MG, BID
     Dates: start: 20040101

REACTIONS (10)
  - MUSCULOSKELETAL STIFFNESS [None]
  - SKIN LESION [None]
  - LUPUS-LIKE SYNDROME [None]
  - SWELLING [None]
  - ERYTHEMA [None]
  - DRUG INTERACTION [None]
  - RASH ERYTHEMATOUS [None]
  - ARTHRALGIA [None]
  - TENDERNESS [None]
  - RASH [None]
